FAERS Safety Report 22327934 (Version 1)
Quarter: 2023Q2

REPORT INFORMATION
  Report Type: Spontaneous
  Country: US (occurrence: US)
  Receive Date: 20230516
  Receipt Date: 20230516
  Transmission Date: 20230721
  Serious: No
  Sender: FDA-Public Use
  Company Number: US-RADIUS HEALTH INC.-2023US001441

PATIENT
  Age: 33 Year
  Sex: Female

DRUGS (1)
  1. TYMLOS [Suspect]
     Active Substance: ABALOPARATIDE
     Indication: Osteoporosis
     Dosage: 80 MCG, DAILY
     Route: 065

REACTIONS (4)
  - Acne [Unknown]
  - Product administered to patient of inappropriate age [Recovered/Resolved]
  - Abdominal distension [Unknown]
  - Fatigue [Unknown]
